FAERS Safety Report 9000040 (Version 1)
Quarter: 2013Q1

REPORT INFORMATION
  Report Type: Spontaneous
  Country: GB (occurrence: GB)
  Receive Date: 20130102
  Receipt Date: 20130102
  Transmission Date: 20140127
  Serious: Yes (Hospitalization)
  Sender: FDA-Public Use
  Company Number: GB-PFIZER INC-2012332187

PATIENT
  Age: 29 Year
  Sex: Female
  Weight: 52.4 kg

DRUGS (5)
  1. PREGABALIN [Suspect]
     Dosage: 225 MG, UNK
     Route: 048
     Dates: start: 20120702, end: 20120716
  2. MIRTAZAPINE [Concomitant]
     Dosage: UNK
  3. TERBINAFINE [Concomitant]
     Dosage: UNK
  4. LORAZEPAM [Concomitant]
     Dosage: UNK
  5. CLONAZEPAM [Concomitant]
     Dosage: UNK

REACTIONS (2)
  - Convulsion [Unknown]
  - Myoclonus [Recovered/Resolved]
